FAERS Safety Report 23853797 (Version 1)
Quarter: 2024Q2

REPORT INFORMATION
  Report Type: Spontaneous
  Country: US (occurrence: US)
  Receive Date: 20240514
  Receipt Date: 20240514
  Transmission Date: 20240716
  Serious: No
  Sender: FDA-Public Use
  Company Number: US-PFIZER INC-202400106687

PATIENT
  Age: 78 Year
  Sex: Female

DRUGS (2)
  1. ALTACE [Suspect]
     Active Substance: RAMIPRIL
     Dosage: 10 MG, 1X/DAY
  2. ALTACE [Suspect]
     Active Substance: RAMIPRIL
     Dosage: 5 MG, 2X/DAY

REACTIONS (1)
  - Drug ineffective [Unknown]
